FAERS Safety Report 8376958-5 (Version None)
Quarter: 2012Q2

REPORT INFORMATION
  Report Type: 
  Country: None (occurrence: None)
  Receive Date: 20120522
  Receipt Date: 20120510
  Transmission Date: 20120825
  Serious: Yes (Other)
  Sender: FDA-Public Use
  Company Number: DE-ELI_LILLY_AND_COMPANY-DE201204003170

PATIENT
  Age: 64 Year
  Sex: Female

DRUGS (3)
  1. VITAMIN B-12 [Concomitant]
  2. ALIMTA [Suspect]
     Indication: LUNG ADENOCARCINOMA
     Dosage: 500 MG/M2, UNK
     Route: 042
     Dates: start: 20120124
  3. FOLIC ACID [Concomitant]

REACTIONS (5)
  - TRANSMISSION OF AN INFECTIOUS AGENT VIA A MEDICINAL PRODUCT [None]
  - INFECTION [None]
  - HYPERHIDROSIS [None]
  - PALPITATIONS [None]
  - PYREXIA [None]
